FAERS Safety Report 6142108-9 (Version None)
Quarter: 2009Q2

REPORT INFORMATION
  Report Type: 
  Country: None (occurrence: None)
  Receive Date: 20090402
  Receipt Date: 20090324
  Transmission Date: 20091009
  Serious: Yes (Other)
  Sender: FDA-Public Use
  Company Number: US-AMGEN-QUU339929

PATIENT
  Sex: Female

DRUGS (20)
  1. NEUPOGEN [Suspect]
     Indication: NEUTROPENIA
     Dates: start: 20061201
  2. DHEA [Concomitant]
  3. POTASSIUM CHLORIDE [Concomitant]
  4. THYROID TAB [Concomitant]
  5. SOLU-CORTEF [Concomitant]
  6. PLAQUENIL [Concomitant]
  7. IODINE [Concomitant]
  8. PROGESTERONE [Concomitant]
  9. ESTRADIOL [Concomitant]
  10. MAGNESIUM SULFATE [Concomitant]
  11. ZINC [Concomitant]
  12. MULTIPLE VITAMINS [Concomitant]
  13. CALCIUM [Concomitant]
  14. VITAMIN B COMPLEX CAP [Concomitant]
  15. ASCORBIC ACID [Concomitant]
  16. VITAMIN D [Concomitant]
  17. FISH OIL [Concomitant]
  18. EVENING PRIMROSE OIL [Concomitant]
  19. CIPROFLOXACIN HCL [Concomitant]
     Dates: end: 20081201
  20. LEVAQUIN [Concomitant]
     Dates: end: 20081201

REACTIONS (11)
  - ARTHRALGIA [None]
  - BONE PAIN [None]
  - DRUG INEFFECTIVE [None]
  - FELTY'S SYNDROME [None]
  - MALAISE [None]
  - MYALGIA [None]
  - NIGHT SWEATS [None]
  - PAIN [None]
  - RASH [None]
  - RHEUMATOID ARTHRITIS [None]
  - WHITE BLOOD CELL COUNT DECREASED [None]
